FAERS Safety Report 24236799 (Version 2)
Quarter: 2024Q3

REPORT INFORMATION
  Report Type: Spontaneous
  Country: US (occurrence: US)
  Receive Date: 20240822
  Receipt Date: 20240903
  Transmission Date: 20241017
  Serious: Yes (Hospitalization, Other)
  Sender: HIKMA
  Company Number: US-MLMSERVICE-20240807-PI155767-00034-1

PATIENT
  Age: 68 Year
  Sex: Male
  Weight: 87.3 kg

DRUGS (3)
  1. AMIODARONE [Suspect]
     Active Substance: AMIODARONE
     Indication: Ventricular tachycardia
     Dosage: THREE 150 MG INTRAVENOUS BOLUS DOSES OF AMIODARONE WITH A DRIP AT 1 TO 0.5MG/MIN OVER A 72 DAY PERIO
     Route: 042
  2. AMIODARONE [Suspect]
     Active Substance: AMIODARONE
     Indication: Ventricular tachycardia
     Dosage: 200-400 MG FOR 19 MONTHS LEADING UP TO EVENT.
     Route: 048
  3. AMIODARONE [Suspect]
     Active Substance: AMIODARONE
     Dosage: 200-400 MG FOR 19 MONTHS LEADING UP TO EVENT.
     Route: 048

REACTIONS (1)
  - Acute interstitial pneumonitis [Recovered/Resolved]
